FAERS Safety Report 23742539 (Version 2)
Quarter: 2024Q4

REPORT INFORMATION
  Report Type: Spontaneous
  Country: US (occurrence: US)
  Receive Date: 20240415
  Receipt Date: 20241205
  Transmission Date: 20250115
  Serious: Yes (Other)
  Sender: ALIMERA
  Company Number: US-ALIMERA SCIENCES INC.-US-A16013-24-000289

PATIENT
  Age: 76 Year
  Sex: Male

DRUGS (1)
  1. YUTIQ [Suspect]
     Active Substance: FLUOCINOLONE ACETONIDE
     Indication: Product used for unknown indication
     Dosage: 0.18 MILLIGRAM, SINGLE, -LEFT EYE
     Route: 031
     Dates: start: 20231207

REACTIONS (2)
  - Medical device removal [Unknown]
  - Device dislocation [Unknown]

NARRATIVE: CASE EVENT DATE: 20231220
